FAERS Safety Report 8763989 (Version 2)
Quarter: 2012Q4

REPORT INFORMATION
  Report Type: 
  Country: US (occurrence: US)
  Receive Date: 20120831
  Receipt Date: 20120831
  Transmission Date: 20130627
  Serious: No
  Sender: FDA-Public Use
  Company Number: US-ASTRAZENECA-2011SE61611

PATIENT
  Sex: Female

DRUGS (12)
  1. SYMBICORT [Suspect]
     Indication: ASTHMA
     Dosage: TWO PUFFS, TWO TIMES A DAY
     Route: 055
     Dates: start: 20110202, end: 20110929
  2. SYMBICORT [Suspect]
     Indication: CHRONIC OBSTRUCTIVE PULMONARY DISEASE
     Dosage: TWO PUFFS, TWO TIMES A DAY
     Route: 055
     Dates: start: 20110202, end: 20110929
  3. SYMBICORT [Suspect]
     Indication: BRONCHITIS
     Dosage: TWO PUFFS, TWO TIMES A DAY
     Route: 055
     Dates: start: 20110202, end: 20110929
  4. SYMBICORT [Suspect]
     Indication: ASTHMA
     Dosage: 80 MCG, TWO PUFFS, TWO TIMES A DAY
     Route: 055
  5. SYMBICORT [Suspect]
     Indication: CHRONIC OBSTRUCTIVE PULMONARY DISEASE
     Dosage: 80 MCG, TWO PUFFS, TWO TIMES A DAY
     Route: 055
  6. SYMBICORT [Suspect]
     Indication: BRONCHITIS
     Dosage: 80 MCG, TWO PUFFS, TWO TIMES A DAY
     Route: 055
  7. ZAFIRLUKAST [Suspect]
     Route: 048
     Dates: start: 2003
  8. ZAFIRLUKAST [Suspect]
     Route: 048
  9. ZAFIRLUKAST [Suspect]
     Route: 048
  10. COMBIVENT [Concomitant]
  11. SPIRIVA [Concomitant]
  12. ALBUTEROL [Concomitant]

REACTIONS (16)
  - Sinus congestion [Unknown]
  - Glucose tolerance impaired [Unknown]
  - Hypoaesthesia [Unknown]
  - Adverse drug reaction [Unknown]
  - Varicose vein ruptured [Unknown]
  - Dyspnoea [Unknown]
  - Escherichia urinary tract infection [Unknown]
  - Productive cough [Unknown]
  - Weight decreased [Unknown]
  - Paraesthesia [Unknown]
  - Paraesthesia [Unknown]
  - Paraesthesia [Unknown]
  - Paraesthesia [Unknown]
  - Hypertension [Unknown]
  - Headache [Unknown]
  - Contusion [Unknown]
